FAERS Safety Report 17528772 (Version 11)
Quarter: 2021Q3

REPORT INFORMATION
  Report Type: Report from Study
  Country: US (occurrence: US)
  Receive Date: 20200312
  Receipt Date: 20210909
  Transmission Date: 20211014
  Serious: Yes (Life-Threatening, Hospitalization, Disabling, Other)
  Sender: FDA-Public Use
  Company Number: NVSC2020US068805

PATIENT
  Age: 77 Year
  Sex: Female

DRUGS (2)
  1. MAYZENT [Suspect]
     Active Substance: SIPONIMOD
     Route: 065
  2. MAYZENT [Suspect]
     Active Substance: SIPONIMOD
     Indication: MULTIPLE SCLEROSIS
     Dosage: 2 MG, QD
     Route: 048
     Dates: start: 20191118, end: 20200225

REACTIONS (17)
  - Myalgia [Not Recovered/Not Resolved]
  - Treatment failure [Not Recovered/Not Resolved]
  - Decreased appetite [Not Recovered/Not Resolved]
  - Pain in extremity [Recovering/Resolving]
  - Fall [Unknown]
  - Pain [Not Recovered/Not Resolved]
  - Motor dysfunction [Not Recovered/Not Resolved]
  - Injury [Not Recovered/Not Resolved]
  - Condition aggravated [Not Recovered/Not Resolved]
  - Muscular weakness [Not Recovered/Not Resolved]
  - Contusion [Not Recovered/Not Resolved]
  - Spinal cord compression [Recovering/Resolving]
  - Mobility decreased [Recovering/Resolving]
  - Weight decreased [Not Recovered/Not Resolved]
  - Limb discomfort [Recovering/Resolving]
  - Product complaint [Unknown]
  - Asthenia [Not Recovered/Not Resolved]

NARRATIVE: CASE EVENT DATE: 20200213
